FAERS Safety Report 9943336 (Version 2)
Quarter: 2014Q1

REPORT INFORMATION
  Report Type: Spontaneous
  Country: US (occurrence: US)
  Receive Date: 20140303
  Receipt Date: 20140306
  Transmission Date: 20141002
  Serious: Yes (Other)
  Sender: FDA-Public Use
  Company Number: CHPA2014US003193

PATIENT
  Age: 53 Year
  Sex: Female

DRUGS (5)
  1. EXCEDRIN MIGRAINE [Suspect]
     Indication: MIGRAINE
     Dosage: 1/2 - 1 TABLET
     Route: 048
     Dates: start: 2003, end: 2005
  2. EXCEDRIN MIGRAINE [Suspect]
     Dosage: UNK
  3. EXCEDRIN MIGRAINE [Suspect]
     Dosage: 1/2 - 1 CAPLET
     Route: 065
     Dates: start: 2003, end: 2005
  4. EXCEDRIN MIGRAINE [Suspect]
     Dosage: 1 DF, UNK
     Route: 065
     Dates: start: 2005
  5. EXCEDRIN EXTRA STRENGTH [Suspect]
     Dosage: MAYBE TAKEN 1
     Route: 065

REACTIONS (6)
  - Cardiac disorder [Not Recovered/Not Resolved]
  - Abdominal pain upper [Recovered/Resolved]
  - Abdominal discomfort [Recovered/Resolved]
  - Therapeutic response decreased [Unknown]
  - Underdose [Unknown]
  - Wrong technique in drug usage process [Unknown]
